FAERS Safety Report 6135987-2 (Version None)
Quarter: 2009Q1

REPORT INFORMATION
  Report Type: 
  Country: None (occurrence: None)
  Receive Date: 20090329
  Receipt Date: 20081202
  Transmission Date: 20090719
  Serious: No
  Sender: FDA-Public Use
  Company Number: US-BAUSCH-2008BL005063

PATIENT
  Age: 65 Year
  Sex: Male

DRUGS (1)
  1. LOTEMAX [Suspect]
     Indication: KERATOCONJUNCTIVITIS SICCA
     Route: 047
     Dates: start: 20081120, end: 20081122

REACTIONS (2)
  - FEAR [None]
  - VERTIGO [None]
